FAERS Safety Report 7556360-6 (Version None)
Quarter: 2011Q2

REPORT INFORMATION
  Report Type: 
  Country: None (occurrence: None)
  Receive Date: 20110620
  Receipt Date: 20110608
  Transmission Date: 20111010
  Serious: Yes (Death, Life-Threatening, Hospitalization, Other)
  Sender: FDA-Public Use
  Company Number: DE-ELI_LILLY_AND_COMPANY-DE201106001969

PATIENT
  Sex: Female

DRUGS (19)
  1. PREDNISONE [Concomitant]
     Dosage: 7.5 MG, UNKNOWN
     Route: 065
  2. KALIUM-DURILES [Concomitant]
     Dosage: UNK, UNKNOWN
     Route: 065
  3. MESALAMINE [Concomitant]
     Dosage: UNK, UNKNOWN
     Route: 065
  4. SCOPOLAMINE [Concomitant]
     Dosage: UNK, PRN
     Route: 065
  5. LORMETAZEPAM [Concomitant]
     Dosage: UNK, UNKNOWN
     Route: 065
  6. CALCIUM CARBONATE [Concomitant]
     Dosage: UNK, UNKNOWN
     Route: 065
  7. ZINC [Concomitant]
     Dosage: UNK UNK, UNKNOWN
     Route: 065
  8. VITAMIN D [Concomitant]
     Dosage: UNK, UNKNOWN
     Route: 065
  9. PANTOPRAZOLE [Concomitant]
     Dosage: 20 MG, UNKNOWN
     Route: 065
  10. MARCUPHEN [Concomitant]
     Dosage: UNK, UNKNOWN
     Route: 065
  11. OSTEOTRIOL [Concomitant]
     Dosage: UNK, UNKNOWN
     Route: 065
  12. LORAZEPAM [Concomitant]
     Dosage: UNK, UNKNOWN
     Route: 065
  13. MAGNESIUM [Concomitant]
     Dosage: UNK, UNKNOWN
     Route: 065
  14. EUNOVA [Concomitant]
     Dosage: UNK, OTHER (EVERY 3 MONTHS)
     Route: 065
  15. LOPERAMIDE [Concomitant]
     Dosage: UNK, UNKNOWN
     Route: 065
  16. HYDROCHLOROTHIAZIDE [Concomitant]
     Dosage: 5 MG, PRN
     Route: 065
  17. CITALOPRAM HYDROBROMIDE [Concomitant]
     Dosage: UNK, UNKNOWN
     Route: 065
  18. FORTEO [Suspect]
     Indication: OSTEOPOROSIS
     Dosage: UNK, QD
     Route: 058
     Dates: start: 20100607
  19. NITROGLYCERIN SPRAY [Concomitant]
     Indication: CHEST PAIN
     Dosage: UNK, PRN
     Route: 065

REACTIONS (5)
  - MALNUTRITION [None]
  - RENAL FAILURE [None]
  - CARDIAC FAILURE [None]
  - PNEUMONIA [None]
  - PULMONARY EMBOLISM [None]
